FAERS Safety Report 10184060 (Version 1)
Quarter: 2014Q2

REPORT INFORMATION
  Report Type: Spontaneous
  Country: LV (occurrence: LV)
  Receive Date: 20140520
  Receipt Date: 20140520
  Transmission Date: 20141212
  Serious: Yes (Other)
  Sender: FDA-Public Use
  Company Number: LV-GLAXOSMITHKLINE-B0995144A

PATIENT
  Age: 75 Year
  Sex: Female

DRUGS (2)
  1. SALBUTAMOL [Suspect]
     Indication: SEASONAL ALLERGY
     Dosage: 200MCG PER DAY
     Route: 055
     Dates: start: 20140428, end: 20140428
  2. ANTIHISTAMINIC [Concomitant]
     Indication: DYSPNOEA

REACTIONS (4)
  - Dyspnoea [Recovered/Resolved]
  - Palpitations [Unknown]
  - Dysgeusia [Unknown]
  - Blood pressure abnormal [Unknown]
